FAERS Safety Report 17698871 (Version 2)
Quarter: 2020Q2

REPORT INFORMATION
  Report Type: Spontaneous
  Country: US (occurrence: US)
  Receive Date: 20200423
  Receipt Date: 20200511
  Transmission Date: 20200714
  Serious: No
  Sender: FDA-Public Use
  Company Number: US-MSNLABS-2020MSNSPO00057

PATIENT

DRUGS (1)
  1. PREGABALIN CAPSULES 75 MG [Suspect]
     Active Substance: PREGABALIN
     Indication: PAIN
     Route: 048
     Dates: start: 201910, end: 201912

REACTIONS (3)
  - Drug ineffective for unapproved indication [Unknown]
  - Headache [Recovered/Resolved]
  - Pain [Recovered/Resolved]
